FAERS Safety Report 8609037-X (Version None)
Quarter: 2012Q3

REPORT INFORMATION
  Report Type: 
  Country: None (occurrence: None)
  Receive Date: 20120821
  Receipt Date: 19930517
  Transmission Date: 20120928
  Serious: Yes (Death)
  Sender: FDA-Public Use
  Company Number: US-ROCHE-1096831

PATIENT
  Age: 33 Year
  Sex: Female

DRUGS (2)
  1. NARCAN [Concomitant]
     Route: 042
  2. ACTIVASE [Suspect]
     Indication: PULMONARY EMBOLISM
     Route: 040

REACTIONS (3)
  - ISCHAEMIC CARDIOMYOPATHY [None]
  - HYPOXIC-ISCHAEMIC ENCEPHALOPATHY [None]
  - PULMONARY EMBOLISM [None]
